FAERS Safety Report 7964274-2 (Version None)
Quarter: 2011Q4

REPORT INFORMATION
  Report Type: 
  Country: None (occurrence: None)
  Receive Date: 20111206
  Receipt Date: 20111128
  Transmission Date: 20120403
  Serious: Yes (Other)
  Sender: FDA-Public Use
  Company Number: 2011MA016937

PATIENT
  Age: 13 Year
  Sex: Female

DRUGS (1)
  1. IBUPROFEN [Suspect]
     Indication: DRUG THERAPY

REACTIONS (4)
  - INDUCED LABOUR [None]
  - STILLBIRTH [None]
  - MATERNAL DRUGS AFFECTING FOETUS [None]
  - CEREBRAL HAEMORRHAGE NEONATAL [None]
